FAERS Safety Report 9283000 (Version 1)
Quarter: 2013Q2

REPORT INFORMATION
  Report Type: Spontaneous
  Country: US (occurrence: US)
  Receive Date: 20130510
  Receipt Date: 20130510
  Transmission Date: 20140414
  Serious: Yes (Other)
  Sender: FDA-Public Use
  Company Number: US-BAYER-2013-056174

PATIENT
  Sex: 0

DRUGS (1)
  1. ALEVE CAPLET [Suspect]
     Route: 048

REACTIONS (1)
  - Haematemesis [None]
